FAERS Safety Report 15203931 (Version 2)
Quarter: 2019Q1

REPORT INFORMATION
  Report Type: Spontaneous
  Country: SE (occurrence: SE)
  Receive Date: 20180726
  Receipt Date: 20190306
  Transmission Date: 20190417
  Serious: Yes (Congenital Anomaly, Other)
  Sender: FDA-Public Use
  Company Number: SE-GILEAD-2018-0351636

PATIENT
  Sex: Female

DRUGS (2)
  1. FERROUS GLYCINE SULFATE [Concomitant]
     Active Substance: FERROUS GLYCINE SULFATE
  2. ATRIPLA [Suspect]
     Active Substance: EFAVIRENZ\EMTRICITABINE\TENOFOVIR DISOPROXIL FUMARATE
     Indication: HIV INFECTION
     Dosage: 600/200/245MG
     Route: 064
     Dates: start: 20111005

REACTIONS (3)
  - Cytogenetic abnormality [Unknown]
  - Foetal exposure during pregnancy [Unknown]
  - Congenital genital malformation female [Unknown]

NARRATIVE: CASE EVENT DATE: 201806
